FAERS Safety Report 4399857-2 (Version None)
Quarter: 2004Q3

REPORT INFORMATION
  Report Type: 
  Country: None (occurrence: None)
  Receive Date: 20040714
  Receipt Date: 20040629
  Transmission Date: 20050211
  Serious: Yes (Death, Hospitalization)
  Sender: FDA-Public Use
  Company Number: CA_040707090

PATIENT
  Age: 37 Year
  Sex: Female

DRUGS (1)
  1. XIGRIS [Suspect]
     Dates: start: 20040601

REACTIONS (1)
  - SEPTIC SHOCK [None]
